FAERS Safety Report 6143449-1 (Version None)
Quarter: 2009Q2

REPORT INFORMATION
  Report Type: 
  Country: None (occurrence: None)
  Receive Date: 20090403
  Receipt Date: 20090326
  Transmission Date: 20091009
  Serious: Yes (Other)
  Sender: FDA-Public Use
  Company Number: PHEH2009US03079

PATIENT
  Sex: Female
  Weight: 79.819 kg

DRUGS (5)
  1. FEMARA [Suspect]
     Indication: BREAST CANCER
     Dosage: 2.5 MG, QD
     Route: 048
     Dates: start: 20060424, end: 20090327
  2. ARICEPT [Concomitant]
     Dosage: 15 MG, QD
  3. CELEXA [Concomitant]
     Dosage: 40 MG, QD
     Route: 048
  4. NAMENDA [Concomitant]
     Dosage: 10 MG, BID
     Route: 048
  5. ASPIRIN [Concomitant]
     Dosage: 81 MG, QD
     Route: 048

REACTIONS (2)
  - AMNESIA [None]
  - DEMENTIA ALZHEIMER'S TYPE [None]
